FAERS Safety Report 10678825 (Version 2)
Quarter: 2014Q4

REPORT INFORMATION
  Report Type: Report from Study
  Country: JP (occurrence: None)
  Receive Date: 20141223
  Receipt Date: 20141224
  Transmission Date: 20150529
  Serious: Yes (Hospitalization)
  Sender: FDA-Public Use
  Company Number: 2014FE03179

PATIENT
  Age: 82 Year
  Sex: Male
  Weight: 54 kg

DRUGS (2)
  1. FE 200486 (DEGARELIX) POWDER AND SOLVENT FOR SOLUTION FOR INJECTION [Suspect]
     Active Substance: DEGARELIX
     Indication: PROSTATE CANCER
     Dosage: 480 MG, EVER EVERY 3RD MONTH, FORMULATION:INJECTION: SUBCUTANEOUS
     Route: 058
     Dates: start: 20140519
  2. URIEF (SILODOSIN) [Concomitant]

REACTIONS (6)
  - Osteoporosis [None]
  - Fall [None]
  - Blood pressure decreased [None]
  - Constipation [None]
  - Bone density decreased [None]
  - Femur fracture [None]

NARRATIVE: CASE EVENT DATE: 20141030
